FAERS Safety Report 11043044 (Version 1)
Quarter: 2015Q2

REPORT INFORMATION
  Report Type: Report from Study
  Country: NL (occurrence: NL)
  Receive Date: 20150417
  Receipt Date: 20150417
  Transmission Date: 20150821
  Serious: Yes (Death, Other)
  Sender: FDA-Public Use
  Company Number: NL-AMGEN-NLDSL2015036357

PATIENT
  Age: 81 Year
  Sex: Male

DRUGS (1)
  1. XGEVA [Suspect]
     Active Substance: DENOSUMAB
     Indication: PROPHYLAXIS
     Dosage: 1.7 ML (70 MCG/ML), Q4WK
     Route: 058
     Dates: start: 20150224

REACTIONS (4)
  - Hypotension [Unknown]
  - Death [Fatal]
  - Confusional state [Unknown]
  - Hypoxia [Unknown]

NARRATIVE: CASE EVENT DATE: 201504
